FAERS Safety Report 18001546 (Version 2)
Quarter: 2020Q3

REPORT INFORMATION
  Report Type: Spontaneous
  Country: ES (occurrence: ES)
  Receive Date: 20200709
  Receipt Date: 20200805
  Transmission Date: 20201103
  Serious: Yes (Hospitalization, Other)
  Sender: FDA-Public Use
  Company Number: NVSC2020ES188401

PATIENT
  Age: 65 Year
  Sex: Male

DRUGS (8)
  1. HYDROXYCHLOROQUINE [Suspect]
     Active Substance: HYDROXYCHLOROQUINE
     Indication: COVID-19
     Dosage: 800 MILLIGRAM, QD
     Route: 048
     Dates: start: 202003
  2. PREDNISONE. [Suspect]
     Active Substance: PREDNISONE
     Indication: IMMUNOSUPPRESSION
     Route: 065
  3. HYDROXYCHLOROQUINE [Suspect]
     Active Substance: HYDROXYCHLOROQUINE
     Dosage: 200 MILLIGRAM (0.5 DAY)
     Route: 048
     Dates: start: 202003
  4. MYCOPHENOLIC ACID. [Suspect]
     Active Substance: MYCOPHENOLIC ACID
     Indication: IMMUNOSUPPRESSION
     Dosage: UNK, BID
     Route: 048
     Dates: start: 202003
  5. HYDROXYCHLOROQUINE [Suspect]
     Active Substance: HYDROXYCHLOROQUINE
     Dosage: 400 MILLIGRAM (0.5 DAY)
     Route: 048
     Dates: start: 202003
  6. TACROLIMUS. [Interacting]
     Active Substance: TACROLIMUS
     Indication: IMMUNOSUPPRESSION
     Dosage: UNK
     Route: 065
     Dates: start: 202003
  7. ENVARSUS XR [Interacting]
     Active Substance: TACROLIMUS
     Indication: IMMUNOSUPPRESSION
     Dosage: UNK
     Route: 065
     Dates: start: 202003
  8. LOPINAVIR/RITONAVIR [Interacting]
     Active Substance: LOPINAVIR\RITONAVIR
     Indication: COVID-19
     Dosage: 1 DF, QD (200/100MG)
     Route: 048
     Dates: start: 202003

REACTIONS (9)
  - C-reactive protein increased [Unknown]
  - Gastrointestinal disorder [Unknown]
  - Drug interaction [Unknown]
  - Acute respiratory distress syndrome [Unknown]
  - Nephropathy toxic [Recovering/Resolving]
  - Off label use [Recovering/Resolving]
  - Renal failure [Recovering/Resolving]
  - Coronavirus infection [Unknown]
  - Drug level increased [Unknown]

NARRATIVE: CASE EVENT DATE: 202003
